FAERS Safety Report 9928604 (Version 2)
Quarter: 2014Q1

REPORT INFORMATION
  Report Type: Report from Study
  Country: JP (occurrence: JP)
  Receive Date: 20140227
  Receipt Date: 20140310
  Transmission Date: 20141002
  Serious: Yes (Death)
  Sender: FDA-Public Use
  Company Number: JP-PFIZER INC-2014054204

PATIENT
  Age: 4 Year
  Sex: Female
  Weight: 10.1 kg

DRUGS (9)
  1. SILDENAFIL CITRATE [Suspect]
     Indication: PULMONARY ARTERIAL HYPERTENSION
     Dosage: 2.5 MG, 2X/DAY
     Route: 048
     Dates: start: 20090218, end: 20090219
  2. SILDENAFIL CITRATE [Suspect]
     Dosage: 5 MG, 2X/DAY
     Route: 048
     Dates: start: 20090220, end: 20090614
  3. SILDENAFIL CITRATE [Suspect]
     Dosage: 7.5 MG, 2X/DAY
     Route: 048
     Dates: start: 20090615
  4. PROCYLIN [Concomitant]
     Indication: PULMONARY HYPERTENSION
     Dosage: UNK
     Route: 048
     Dates: start: 20090218
  5. LASIX [Concomitant]
     Dosage: UNK
     Route: 048
     Dates: start: 20090218
  6. ALDACTONE [Concomitant]
     Dosage: UNK
     Route: 048
     Dates: start: 20090218
  7. ASPIRIN [Concomitant]
     Indication: ANTIPLATELET THERAPY
     Dosage: UNK
     Route: 048
     Dates: start: 20090218
  8. WARFARIN [Concomitant]
     Indication: ANTICOAGULANT THERAPY
     Dosage: UNK
     Route: 048
     Dates: start: 20090218
  9. RENIVACE [Concomitant]
     Dosage: UNK
     Route: 048
     Dates: start: 20100323

REACTIONS (1)
  - Post procedural complication [Fatal]
